FAERS Safety Report 10499781 (Version 2)
Quarter: 2014Q4

REPORT INFORMATION
  Report Type: Spontaneous
  Country: US (occurrence: US)
  Receive Date: 20141006
  Receipt Date: 20141006
  Transmission Date: 20150528
  Serious: No
  Sender: FDA-Public Use
  Company Number: US-AMGEN INC.-USASP2014048631

PATIENT
  Age: 79 Year
  Sex: Female
  Weight: 66.21 kg

DRUGS (2)
  1. PROLIA [Suspect]
     Active Substance: DENOSUMAB
     Indication: OSTEOPOROSIS POSTMENOPAUSAL
     Dosage: 60 MG, Q6MO
     Route: 058
     Dates: end: 20140604
  2. PROLIA [Suspect]
     Active Substance: DENOSUMAB
     Route: 065

REACTIONS (2)
  - Hot flush [Recovered/Resolved]
  - Night sweats [Recovered/Resolved]
